FAERS Safety Report 17801878 (Version 1)
Quarter: 2020Q2

REPORT INFORMATION
  Report Type: Spontaneous
  Country: US (occurrence: US)
  Receive Date: 20200518
  Receipt Date: 20200518
  Transmission Date: 20200714
  Serious: Yes (Life-Threatening)
  Sender: FDA-Public Use
  Company Number: None

PATIENT
  Age: 89 Year
  Sex: Male
  Weight: 81 kg

DRUGS (2)
  1. VASCEPA [Suspect]
     Active Substance: ICOSAPENT ETHYL
     Indication: BLOOD CHOLESTEROL INCREASED
     Dosage: ?          QUANTITY:2 CAPSULE(S);?
     Route: 048
  2. GABPENTIN [Concomitant]

REACTIONS (6)
  - Pain in extremity [None]
  - Constipation [None]
  - Gait disturbance [None]
  - Therapy cessation [None]
  - Gait inability [None]
  - Peripheral swelling [None]

NARRATIVE: CASE EVENT DATE: 20200427
